FAERS Safety Report 15669472 (Version 1)
Quarter: 2018Q4

REPORT INFORMATION
  Report Type: Spontaneous
  Country: CN (occurrence: CN)
  Receive Date: 20181129
  Receipt Date: 20181129
  Transmission Date: 20190205
  Serious: Yes (Hospitalization)
  Sender: FDA-Public Use
  Company Number: CN-ROCHE-2221944

PATIENT
  Age: 69 Year
  Sex: Male
  Weight: 59 kg

DRUGS (15)
  1. SODIUM CHLORIDE. [Concomitant]
     Active Substance: SODIUM CHLORIDE
     Dosage: FOR LOT NO.A18051406-2
     Route: 041
     Dates: start: 20180920, end: 20180920
  2. CELECOXIB. [Concomitant]
     Active Substance: CELECOXIB
     Route: 048
     Dates: start: 20180923, end: 20180925
  3. ONDANSETRON HYDROCHLORIDE. [Concomitant]
     Active Substance: ONDANSETRON HYDROCHLORIDE
     Route: 041
     Dates: start: 20180920, end: 20180924
  4. GLUCOSE [Concomitant]
     Active Substance: DEXTROSE
     Dosage: FOR LOT NO. L218060403
     Route: 041
     Dates: start: 20180920, end: 20180920
  5. SODIUM CHLORIDE. [Concomitant]
     Active Substance: SODIUM CHLORIDE
     Dosage: FOR LOT NO.C18062208-2
     Route: 041
     Dates: start: 20180920, end: 20180920
  6. AVASTIN [Suspect]
     Active Substance: BEVACIZUMAB
     Indication: LUNG NEOPLASM MALIGNANT
     Dosage: INJECTION
     Route: 041
     Dates: start: 20180920, end: 20180920
  7. PEMETREXED DISODIUM [Suspect]
     Active Substance: PEMETREXED DISODIUM
     Indication: LUNG NEOPLASM MALIGNANT
     Route: 041
     Dates: start: 20180920, end: 20180920
  8. SODIUM CHLORIDE. [Concomitant]
     Active Substance: SODIUM CHLORIDE
     Dosage: FOR LOT NO.C18060907-1
     Route: 041
     Dates: start: 20180920, end: 20180924
  9. BUPRENORPHINE. [Concomitant]
     Active Substance: BUPRENORPHINE
     Route: 065
     Dates: start: 20180922
  10. AMLODIPINE BESYLATE. [Concomitant]
     Active Substance: AMLODIPINE BESYLATE
     Indication: BLOOD PRESSURE DECREASED
     Dosage: DISPERSIBLE
     Route: 048
     Dates: start: 20180922, end: 20180925
  11. LOBAPLATIN [Suspect]
     Active Substance: LOBAPLATIN
     Indication: LUNG NEOPLASM MALIGNANT
     Route: 041
     Dates: start: 20180920, end: 20180920
  12. GLUCOSE [Concomitant]
     Active Substance: DEXTROSE
     Dosage: FOR LOT NO. N18032307-1
     Route: 041
     Dates: start: 20180920, end: 20180924
  13. OMEPRAZOLE SODIUM [Concomitant]
     Active Substance: OMEPRAZOLE SODIUM
     Route: 040
     Dates: start: 20180920, end: 20180924
  14. GLUTATHIONE [Concomitant]
     Active Substance: GLUTATHIONE
     Route: 041
     Dates: start: 20180920, end: 20180924
  15. METOCLOPRAMIDE DIHYDROCHLORIDE [Concomitant]
     Route: 040
     Dates: start: 20180920, end: 20180924

REACTIONS (2)
  - Rash [Recovering/Resolving]
  - Full blood count decreased [Recovering/Resolving]

NARRATIVE: CASE EVENT DATE: 20180929
